FAERS Safety Report 5444083-9 (Version None)
Quarter: 2007Q3

REPORT INFORMATION
  Report Type: 
  Country: None (occurrence: None)
  Receive Date: 20070831
  Receipt Date: 20070824
  Transmission Date: 20080115
  Serious: Yes (Death, Hospitalization)
  Sender: FDA-Public Use
  Company Number: 2007SP002763

PATIENT
  Age: 57 Year
  Sex: Female
  Weight: 119.296 kg

DRUGS (41)
  1. BROVANA [Suspect]
     Indication: ASTHMA
     Dosage: 15 UG; BID; INHALATION
     Route: 055
     Dates: start: 20070803
  2. BROVANA [Suspect]
     Indication: CHRONIC OBSTRUCTIVE PULMONARY DISEASE
     Dosage: 15 UG; BID; INHALATION
     Route: 055
     Dates: start: 20070803
  3. AVELOX [Concomitant]
  4. DUONEB [Concomitant]
  5. BUDESONIDE [Concomitant]
  6. OXYGEN [Concomitant]
  7. PANTOPRAZOLE SODIUM [Concomitant]
  8. SPIRONOLACTONE [Concomitant]
  9. WELLBUTRIN [Concomitant]
  10. AMLODIPINE [Concomitant]
  11. HUMULIN R [Concomitant]
  12. KLOR-CON [Concomitant]
  13. LUNESTA [Concomitant]
  14. CLOPIDOGREL [Concomitant]
  15. SINGULAIR [Concomitant]
  16. CYCLOBENZAPRINE HCL [Concomitant]
  17. DYAZIDE [Concomitant]
  18. HYDRALAZINE HCL [Concomitant]
  19. BUSPIRONE HCL [Concomitant]
  20. DICYCLOMINE [Concomitant]
  21. VALIUM [Concomitant]
  22. CLONIDINE [Concomitant]
  23. DIPHENHYDRAMINE HCL [Concomitant]
  24. LASIX [Concomitant]
  25. PROMETHAZINE [Concomitant]
  26. OXYCONTIN [Concomitant]
  27. PERCOCET [Concomitant]
  28. MUCINEX [Concomitant]
  29. VISINE EYE DROPS [Concomitant]
  30. ALBUTEROL [Concomitant]
  31. VERAPAMIL [Concomitant]
  32. LOVENOX [Concomitant]
  33. AVINZA [Concomitant]
  34. AMBIEN [Concomitant]
  35. TIMENTIN [Concomitant]
  36. PRINIVIL [Concomitant]
  37. DILTIAZEM [Concomitant]
  38. MIRALAX [Concomitant]
  39. DULCOLAX [Concomitant]
  40. HYDROCORTISONE [Concomitant]
  41. MYCELEX [Concomitant]

REACTIONS (9)
  - BREATH SOUNDS ABNORMAL [None]
  - BUNDLE BRANCH BLOCK [None]
  - CHEST PAIN [None]
  - HEART RATE INCREASED [None]
  - NO THERAPEUTIC RESPONSE [None]
  - PNEUMONITIS [None]
  - SINUS TACHYCARDIA [None]
  - STENOTROPHOMONAS INFECTION [None]
  - WEIGHT DECREASED [None]
